FAERS Safety Report 8519935-3 (Version None)
Quarter: 2012Q3

REPORT INFORMATION
  Report Type: 
  Country: None (occurrence: None)
  Receive Date: 20120719
  Receipt Date: 20120713
  Transmission Date: 20120928
  Serious: No
  Sender: FDA-Public Use
  Company Number: US-009507513-1207USA004632

PATIENT

DRUGS (2)
  1. VICTRELIS [Suspect]
  2. PEG-INTRON [Suspect]

REACTIONS (1)
  - ANAEMIA [None]
